FAERS Safety Report 7206114-5 (Version None)
Quarter: 2010Q4

REPORT INFORMATION
  Report Type: 
  Country: None (occurrence: None)
  Receive Date: 20101229
  Receipt Date: 20101229
  Transmission Date: 20110411
  Serious: No
  Sender: FDA-Public Use
  Company Number: None

PATIENT
  Age: 84 Year
  Sex: Male

DRUGS (1)
  1. TAXOTERE [Suspect]
     Indication: SARCOMA
     Dosage: 80 MG IV DRIP
     Route: 041
     Dates: start: 20101202, end: 20101202

REACTIONS (2)
  - INFUSION SITE PHLEBITIS [None]
  - PRODUCT FORMULATION ISSUE [None]
